FAERS Safety Report 21989574 (Version 4)
Quarter: 2023Q2

REPORT INFORMATION
  Report Type: Spontaneous
  Country: US (occurrence: US)
  Receive Date: 20230214
  Receipt Date: 20230404
  Transmission Date: 20230722
  Serious: Yes (Hospitalization)
  Sender: FDA-Public Use
  Company Number: US-LUNDBECK-DKLU3058153

PATIENT
  Age: 68 Year
  Sex: Male
  Weight: 86 kg

DRUGS (2)
  1. NORTHERA [Suspect]
     Active Substance: DROXIDOPA
     Indication: Hypotension
     Route: 048
     Dates: start: 202301
  2. NORTHERA [Suspect]
     Active Substance: DROXIDOPA
     Indication: Amyloidosis
     Route: 048

REACTIONS (3)
  - Sepsis [Unknown]
  - Peritonitis [Unknown]
  - Dysphagia [Not Recovered/Not Resolved]

NARRATIVE: CASE EVENT DATE: 20230101
